FAERS Safety Report 4430881-7 (Version None)
Quarter: 2004Q3

REPORT INFORMATION
  Report Type: 
  Country: None (occurrence: None)
  Receive Date: 20040823
  Receipt Date: 20040813
  Transmission Date: 20050211
  Serious: Yes (Death)
  Sender: FDA-Public Use
  Company Number: AU-BRISTOL-MYERS SQUIBB COMPANY-12670931

PATIENT
  Sex: Female

DRUGS (9)
  1. WARFARIN SODIUM [Suspect]
     Indication: ARRHYTHMIA
     Route: 048
     Dates: start: 20030808, end: 20030813
  2. ENOXAPARIN SODIUM [Suspect]
     Route: 058
     Dates: start: 20030808, end: 20030812
  3. CLOPIDROGREL BISULFATE [Suspect]
     Route: 048
  4. METOPROLOL [Concomitant]
  5. ISOSORBIDE [Concomitant]
  6. PANTOPRAZOLE [Concomitant]
  7. GABAPENTIN [Concomitant]
  8. GLICLAZIDE [Concomitant]
  9. RAMIPRIL [Concomitant]

REACTIONS (4)
  - ANAEMIA [None]
  - HAEMATOMA [None]
  - INTRA-ABDOMINAL HAEMORRHAGE [None]
  - LOSS OF CONSCIOUSNESS [None]
